FAERS Safety Report 18811517 (Version 1)
Quarter: 2021Q1

REPORT INFORMATION
  Report Type: Spontaneous
  Country: FR (occurrence: FR)
  Receive Date: 20210129
  Receipt Date: 20210129
  Transmission Date: 20210419
  Serious: Yes (Hospitalization, Other)
  Sender: FDA-Public Use
  Company Number: FR-009507513-2101FRA013227

PATIENT
  Age: 68 Year
  Sex: Male

DRUGS (1)
  1. KEYTRUDA [Suspect]
     Active Substance: PEMBROLIZUMAB
     Indication: NON-SMALL CELL LUNG CANCER
     Dosage: UNK
     Dates: start: 202006

REACTIONS (4)
  - COVID-19 [Unknown]
  - Encephalitis [Unknown]
  - Immune thrombocytopenia [Unknown]
  - Scleroderma [Unknown]

NARRATIVE: CASE EVENT DATE: 2020
